FAERS Safety Report 8971951 (Version 1)
Quarter: 2012Q4

REPORT INFORMATION
  Report Type: 
  Country: CA (occurrence: CA)
  Receive Date: 20121219
  Receipt Date: 20121219
  Transmission Date: 20130627
  Serious: Yes (Other)
  Sender: FDA-Public Use
  Company Number: CA-AMGEN-CANSP2012080788

PATIENT
  Age: 69 Year
  Sex: Female
  Weight: 72.73 kg

DRUGS (1)
  1. PROLIA [Suspect]
     Indication: OSTEOPOROSIS POSTMENOPAUSAL
     Dosage: UNK
     Dates: start: 20120113

REACTIONS (13)
  - Compression fracture [Unknown]
  - Osteonecrosis of jaw [Unknown]
  - Pain in jaw [Unknown]
  - Trismus [Unknown]
  - Muscle spasms [Unknown]
  - Tremor [Unknown]
  - Burning sensation [Unknown]
  - Skin papilloma [Unknown]
  - Parathyroid disorder [Unknown]
  - Groin pain [Unknown]
  - Back pain [Unknown]
  - Bone pain [Unknown]
  - Musculoskeletal pain [Unknown]
